FAERS Safety Report 4416422-9 (Version None)
Quarter: 2004Q3

REPORT INFORMATION
  Report Type: 
  Country: None (occurrence: None)
  Receive Date: 20040802
  Receipt Date: 20040721
  Transmission Date: 20050211
  Serious: Yes (Hospitalization)
  Sender: FDA-Public Use
  Company Number: 04P-056-0267776-00

PATIENT
  Age: 80 Year
  Sex: Female

DRUGS (6)
  1. ISOPTIN [Suspect]
     Dosage: 360 MG, 1 IN 1 D, PER ORAL
     Route: 048
  2. NITRIDERM [Concomitant]
  3. NOCTRAN [Concomitant]
  4. BROMAZEPAM [Concomitant]
  5. KARGESIC [Concomitant]
  6. TRANSILANE [Concomitant]

REACTIONS (11)
  - AORTIC STENOSIS [None]
  - ATRIOVENTRICULAR BLOCK COMPLETE [None]
  - BLOOD PRESSURE DECREASED [None]
  - CONFUSIONAL STATE [None]
  - DEHYDRATION [None]
  - DEPRESSED LEVEL OF CONSCIOUSNESS [None]
  - ELECTROCARDIOGRAM QRS COMPLEX SHORTENED [None]
  - ELECTROCARDIOGRAM QT PROLONGED [None]
  - GLASGOW COMA SCALE ABNORMAL [None]
  - OVERDOSE [None]
  - RENAL FAILURE [None]
